FAERS Safety Report 22609630 (Version 1)
Quarter: 2023Q2

REPORT INFORMATION
  Report Type: Report from Study
  Country: US (occurrence: US)
  Receive Date: 20230616
  Receipt Date: 20230616
  Transmission Date: 20230722
  Serious: Yes (Hospitalization, Other)
  Sender: FDA-Public Use
  Company Number: US-PFIZER INC-202300221851

PATIENT

DRUGS (4)
  1. LINEZOLID [Suspect]
     Active Substance: LINEZOLID
     Indication: Tuberculosis
     Dosage: 600 MG, DAILY
     Route: 048
  2. LINEZOLID [Suspect]
     Active Substance: LINEZOLID
     Dosage: 600 MG, TIW THREE TIMES PER WEEK ON MONDAY, WEDNESDAY AND FRIDAY
  3. BEDAQUILINE [Concomitant]
     Active Substance: BEDAQUILINE
     Indication: Tuberculosis
     Dosage: UNK
     Route: 048
  4. PRETOMANID [Concomitant]
     Active Substance: PRETOMANID
     Indication: Tuberculosis
     Dosage: UNK
     Route: 048

REACTIONS (2)
  - Anaemia [Unknown]
  - Drug level increased [Unknown]
